FAERS Safety Report 5401305-8 (Version None)
Quarter: 2007Q3

REPORT INFORMATION
  Report Type: 
  Country: None (occurrence: None)
  Receive Date: 20070731
  Receipt Date: 20070719
  Transmission Date: 20080115
  Serious: Yes (Hospitalization)
  Sender: FDA-Public Use
  Company Number: HQWYE152719JUL07

PATIENT
  Sex: Male
  Weight: 75.82 kg

DRUGS (8)
  1. TIGECYCLINE [Suspect]
     Indication: DIABETIC FOOT INFECTION
     Route: 042
     Dates: start: 20070707, end: 20070718
  2. DILTIAZEM [Concomitant]
     Indication: CORONARY ARTERY DISEASE
     Dosage: UNKNOWN
  3. GLYCOPYRROLATE [Concomitant]
     Indication: DIABETES MELLITUS
     Dosage: UNKNOWN
  4. METOPROLOL SUCCINATE [Concomitant]
     Indication: HYPERTENSION
     Dosage: UNKNOWN
  5. VYTORIN [Concomitant]
     Indication: HYPERCHOLESTEROLAEMIA
     Dosage: UNKNOWN
  6. BUMETANIDE [Concomitant]
     Indication: CORONARY ARTERY DISEASE
     Dosage: UNKNOWN
  7. COUMADIN [Concomitant]
     Indication: IMPLANTABLE DEFIBRILLATOR INSERTION
     Dosage: UNKNOWN
  8. DIGITEK [Concomitant]
     Indication: CORONARY ARTERY DISEASE
     Dosage: UNKNOWN

REACTIONS (1)
  - RENAL FAILURE ACUTE [None]
